FAERS Safety Report 6131736-2 (Version None)
Quarter: 2009Q1

REPORT INFORMATION
  Report Type: 
  Country: None (occurrence: None)
  Receive Date: 20090325
  Receipt Date: 20090318
  Transmission Date: 20090719
  Serious: Yes (Hospitalization)
  Sender: FDA-Public Use
  Company Number: PHEH2009US02470

PATIENT
  Sex: Female

DRUGS (2)
  1. RECLAST [Suspect]
     Indication: OSTEOPOROSIS
     Dosage: 5 MG
     Route: 042
     Dates: start: 20080625, end: 20080625
  2. SYNTHROID [Concomitant]
     Indication: HYPOTHYROIDISM
     Route: 048

REACTIONS (14)
  - BONE PAIN [None]
  - CHEST PAIN [None]
  - CONJUNCTIVITIS [None]
  - EYE PAIN [None]
  - GAIT DISTURBANCE [None]
  - HEADACHE [None]
  - JOINT SWELLING [None]
  - MYALGIA [None]
  - OEDEMA PERIPHERAL [None]
  - PHOTOSENSITIVITY REACTION [None]
  - PYREXIA [None]
  - RASH [None]
  - RED BLOOD CELL SEDIMENTATION RATE INCREASED [None]
  - VITAMIN D DECREASED [None]
